FAERS Safety Report 9732582 (Version 1)
Quarter: 2013Q4

REPORT INFORMATION
  Report Type: Spontaneous
  Country: JP (occurrence: JP)
  Receive Date: 20131205
  Receipt Date: 20131205
  Transmission Date: 20140711
  Serious: Yes (Other)
  Sender: FDA-Public Use
  Company Number: JP-OTSUKA-JP-2013-15692

PATIENT
  Age: 45 Year
  Sex: Male

DRUGS (2)
  1. SAMSCA [Suspect]
     Indication: CARDIAC FAILURE CHRONIC
     Dosage: 3.75 MG MILLIGRAM(S), QD
     Route: 048
  2. LASIX [Concomitant]
     Dosage: 40 MG MILLIGRAM(S), BID
     Route: 048

REACTIONS (2)
  - Altered state of consciousness [Unknown]
  - Hypernatraemia [Recovered/Resolved]
